FAERS Safety Report 20322598 (Version 2)
Quarter: 2022Q1

REPORT INFORMATION
  Report Type: Spontaneous
  Country: FR (occurrence: FR)
  Receive Date: 20220111
  Receipt Date: 20220120
  Transmission Date: 20220423
  Serious: Yes (Other)
  Sender: FDA-Public Use
  Company Number: FR-002147023-NVSC2021FR295511

PATIENT
  Sex: Male

DRUGS (6)
  1. CISPLATIN [Suspect]
     Active Substance: CISPLATIN
     Indication: Non-small cell lung cancer stage IV
     Dosage: IST LINE TREATMENT
     Route: 065
     Dates: start: 201912, end: 202002
  2. PACLITAXEL [Suspect]
     Active Substance: PACLITAXEL
     Indication: Non-small cell lung cancer
     Dosage: 2ND LINE TREATMENT
     Route: 065
     Dates: start: 202003, end: 202004
  3. CARBOPLATIN [Suspect]
     Active Substance: CARBOPLATIN
     Indication: Product used for unknown indication
     Dosage: (2ND LINE TREATMENT)
     Route: 065
     Dates: start: 202003, end: 202004
  4. PEMBROLIZUMAB [Suspect]
     Active Substance: PEMBROLIZUMAB
     Indication: Non-small cell lung cancer
     Dosage: 3RD LINE TREATMENT
     Route: 065
     Dates: start: 202007, end: 202101
  5. NAVELBINE [Suspect]
     Active Substance: VINORELBINE TARTRATE
     Indication: Non-small cell lung cancer
     Dosage: (1ST LINE TREATMENT)
     Route: 065
     Dates: start: 201912, end: 202002
  6. CAPMATINIB [Suspect]
     Active Substance: CAPMATINIB
     Indication: Non-small cell lung cancer
     Dosage: 800 MILLIGRAM, QD (800 MG, QD)
     Route: 065
     Dates: start: 20210308

REACTIONS (3)
  - Malignant neoplasm progression [Unknown]
  - Non-small cell lung cancer [Unknown]
  - Oedema peripheral [Unknown]
